FAERS Safety Report 11313764 (Version 1)
Quarter: 2015Q3

REPORT INFORMATION
  Report Type: Spontaneous
  Country: US (occurrence: US)
  Receive Date: 20150727
  Receipt Date: 20150727
  Transmission Date: 20151125
  Serious: No
  Sender: FDA-Public Use
  Company Number: US-ABBVIE-15P-163-1346377-00

PATIENT
  Sex: Male
  Weight: 104.42 kg

DRUGS (2)
  1. LEVOTHYROXINE. [Suspect]
     Active Substance: LEVOTHYROXINE
     Indication: HYPOTHYROIDISM
     Route: 048
     Dates: start: 2013, end: 201412
  2. SYNTHROID [Suspect]
     Active Substance: LEVOTHYROXINE SODIUM
     Indication: HYPOTHYROIDISM
     Route: 048
     Dates: start: 201412

REACTIONS (7)
  - Hypothyroidism [Recovered/Resolved]
  - Constipation [Recovered/Resolved]
  - Drug ineffective [Recovered/Resolved]
  - Lethargy [Recovered/Resolved]
  - Product quality issue [Unknown]
  - Swelling face [Not Recovered/Not Resolved]
  - Blood thyroid stimulating hormone increased [Recovered/Resolved]

NARRATIVE: CASE EVENT DATE: 2013
